FAERS Safety Report 18577886 (Version 2)
Quarter: 2021Q1

REPORT INFORMATION
  Report Type: Report from Study
  Country: US (occurrence: US)
  Receive Date: 20201204
  Receipt Date: 20210304
  Transmission Date: 20210419
  Serious: Yes (Other)
  Sender: FDA-Public Use
  Company Number: US-ROCHE-2725313

PATIENT
  Age: 59 Year
  Sex: Male
  Weight: 84.6 kg

DRUGS (9)
  1. OBINUTUZUMAB. [Suspect]
     Active Substance: OBINUTUZUMAB
     Dosage: DAY 2, CYCLE 1
     Route: 042
  2. VENETOCLAX. [Suspect]
     Active Substance: VENETOCLAX
     Dosage: 50 MG  DAYS 8?14, CYCLE 3
     Route: 048
  3. VENETOCLAX. [Suspect]
     Active Substance: VENETOCLAX
     Dosage: 100 MG DAYS 15?21, CYCLE 3
     Route: 048
  4. OBINUTUZUMAB. [Suspect]
     Active Substance: OBINUTUZUMAB
     Indication: CHRONIC LYMPHOCYTIC LEUKAEMIA
     Dosage: ADMINISTRATION OF LAST DOSE OF OBINUTUZUMAB ON 02/SEP/2020?DAY 1, CYCLE 1
     Route: 042
     Dates: start: 20200609
  5. VENETOCLAX. [Suspect]
     Active Substance: VENETOCLAX
     Indication: CHRONIC LYMPHOCYTIC LEUKAEMIA
     Dosage: 20 MG DAYS 1?7 CYCLE 3
     Route: 048
     Dates: start: 20200609
  6. VENETOCLAX. [Suspect]
     Active Substance: VENETOCLAX
     Dosage: 400 MG DAYS 1?28, CYCLES 4?14?ADMINISTRATION OF LAST DOSE OF VENETOCLAX ON 29/OCT/2020?TOTAL DOSE AD
     Route: 048
  7. OBINUTUZUMAB. [Suspect]
     Active Substance: OBINUTUZUMAB
     Dosage: 1000 MG IV ON DAY 8, CYCLE 1 1000 MG IV ON DAY 15, CYCLE 1, 1000 MG IV ON DAY 1,?CYCLE 2?6
     Route: 042
  8. VENETOCLAX. [Suspect]
     Active Substance: VENETOCLAX
     Dosage: 200 MG DAYS 22?28, CYCLE 3
     Route: 048
  9. IBRUTINIB [Suspect]
     Active Substance: IBRUTINIB
     Indication: CHRONIC LYMPHOCYTIC LEUKAEMIA
     Dosage: DATE OF LAST ADMINISTRATION OF DOSE OF IBRUTINIB ON 29/SEP/2020.?1170 MG WAS GIVEN IN COURSE 4 AND C
     Route: 048
     Dates: start: 20200609

REACTIONS (1)
  - Fatigue [Recovered/Resolved]

NARRATIVE: CASE EVENT DATE: 20200930
